FAERS Safety Report 6229763-X (Version None)
Quarter: 2009Q2

REPORT INFORMATION
  Report Type: 
  Country: None (occurrence: None)
  Receive Date: 20090615
  Receipt Date: 20090610
  Transmission Date: 20091009
  Serious: Yes (Life-Threatening, Hospitalization)
  Sender: FDA-Public Use
  Company Number: PHHY2009MX22581

PATIENT
  Age: 35 Year
  Sex: Male

DRUGS (1)
  1. TEGRETOL [Suspect]
     Indication: EPILEPSY
     Dosage: 5 TABLETS (200 MG) PER DAY
     Route: 048
     Dates: start: 20050101, end: 20090518

REACTIONS (1)
  - BRAIN TUMOUR OPERATION [None]
